FAERS Safety Report 25144953 (Version 8)
Quarter: 2025Q4

REPORT INFORMATION
  Report Type: Spontaneous
  Country: US (occurrence: US)
  Receive Date: 20250401
  Receipt Date: 20251112
  Transmission Date: 20260117
  Serious: No
  Sender: BAYER HEALTHCARE PHARMACEUTICALS INC.
  Company Number: US-BAYER-2025A038881

PATIENT
  Age: 61 Year
  Sex: Female

DRUGS (1)
  1. CLIMARA [Suspect]
     Active Substance: ESTRADIOL
     Dosage: UNK
     Route: 062
     Dates: start: 202410

REACTIONS (9)
  - Application site rash [Recovered/Resolved]
  - Device material issue [None]
  - Device adhesion issue [None]
  - Application site inflammation [None]
  - Application site eczema [None]
  - Application site pain [Recovering/Resolving]
  - Application site reaction [None]
  - Burning sensation [None]
  - Scar [None]

NARRATIVE: CASE EVENT DATE: 20250101
